FAERS Safety Report 9201860 (Version 2)
Quarter: 2013Q3

REPORT INFORMATION
  Report Type: Spontaneous
  Country: FR (occurrence: FR)
  Receive Date: 20130401
  Receipt Date: 20130710
  Transmission Date: 20140515
  Serious: Yes (Other)
  Sender: FDA-Public Use
  Company Number: FR-ELI_LILLY_AND_COMPANY-FR201303006798

PATIENT
  Age: 74 Year
  Sex: Female

DRUGS (9)
  1. ALIMTA [Suspect]
     Indication: NON-SMALL CELL LUNG CANCER METASTATIC
     Dosage: UNK
     Route: 042
     Dates: start: 20121025, end: 20130112
  2. CARBOPLATIN [Suspect]
     Dosage: UNK
     Route: 042
     Dates: start: 20121025, end: 20130111
  3. ONDANSETRON [Suspect]
     Dosage: 6 MG, OTHER
     Route: 042
     Dates: start: 20121025, end: 20130111
  4. SOLU-PRED [Suspect]
     Indication: PREMEDICATION
     Dosage: 25 MG, OTHER
     Route: 048
     Dates: start: 20121024, end: 20130112
  5. SOLU-PRED [Suspect]
     Dosage: 60 MG, OTHER
     Route: 042
     Dates: start: 20121025, end: 20130111
  6. SOLUMEDROL [Suspect]
     Indication: PREMEDICATION
     Dosage: 60 MG, UNK
     Dates: start: 20121025, end: 20130111
  7. SPECIAFOLDINE [Concomitant]
     Dosage: 0.4 MG, QD
     Dates: start: 20121020
  8. SPECIAFOLDINE [Concomitant]
     Dosage: 5 MG, WEEKLY (1/W)
     Dates: start: 20121020
  9. DODECAVIT [Concomitant]
     Dosage: 0.015 MG, OTHER
     Dates: start: 20121025

REACTIONS (5)
  - Cholestasis [Not Recovered/Not Resolved]
  - Blood alkaline phosphatase increased [Not Recovered/Not Resolved]
  - Gamma-glutamyltransferase increased [Not Recovered/Not Resolved]
  - Transaminases increased [Recovered/Resolved]
  - Off label use [Recovered/Resolved]
